FAERS Safety Report 15107205 (Version 6)
Quarter: 2019Q1

REPORT INFORMATION
  Report Type: Spontaneous
  Country: US (occurrence: US)
  Receive Date: 20180704
  Receipt Date: 20190213
  Transmission Date: 20190417
  Serious: Yes (Other)
  Sender: FDA-Public Use
  Company Number: US-PFIZER INC-2018268336

PATIENT
  Age: 49 Year
  Sex: Female
  Weight: 91.16 kg

DRUGS (10)
  1. CELEBREX [Suspect]
     Active Substance: CELECOXIB
     Indication: ARTHRITIS
     Dosage: UNK
     Dates: end: 201807
  2. SKELAXIN [Suspect]
     Active Substance: METAXALONE
     Dosage: 800 MG, 3X/DAY
     Route: 048
  3. SKELAXIN [Suspect]
     Active Substance: METAXALONE
     Indication: MUSCLE DISORDER
     Dosage: UNK
     Route: 048
     Dates: end: 201806
  4. LEXAPRO [Concomitant]
     Active Substance: ESCITALOPRAM OXALATE
     Indication: DEPRESSION
     Dosage: 10 MG, 1X/DAY
     Route: 048
     Dates: start: 201804
  5. CELEBREX [Suspect]
     Active Substance: CELECOXIB
     Indication: INFLAMMATION
     Dosage: 60 MG, 2X/DAY
     Route: 048
     Dates: start: 201709
  6. CHANTIX [Suspect]
     Active Substance: VARENICLINE TARTRATE
     Dosage: UNK
     Route: 048
  7. HYDROCODONE [Concomitant]
     Active Substance: HYDROCODONE
     Indication: MUSCULOSKELETAL DISCOMFORT
  8. CLONAZEPAM. [Concomitant]
     Active Substance: CLONAZEPAM
     Indication: ANXIETY
     Dosage: 2 MG, 2X/DAY
     Route: 048
     Dates: start: 1997
  9. HYDROCODONE [Concomitant]
     Active Substance: HYDROCODONE
     Indication: BACK DISORDER
     Dosage: 10 MG, 3X/DAY
     Route: 048
  10. CLONAZEPAM. [Concomitant]
     Active Substance: CLONAZEPAM
     Dosage: 2 MG, 3X/DAY

REACTIONS (14)
  - Malaise [Unknown]
  - Intentional product use issue [Recovered/Resolved]
  - Myalgia [Not Recovered/Not Resolved]
  - Peripheral swelling [Not Recovered/Not Resolved]
  - Condition aggravated [Not Recovered/Not Resolved]
  - Oropharyngeal pain [Not Recovered/Not Resolved]
  - Loss of personal independence in daily activities [Unknown]
  - Inflammation [Unknown]
  - Muscle tightness [Not Recovered/Not Resolved]
  - Pulmonary congestion [Not Recovered/Not Resolved]
  - Product dose omission [Not Recovered/Not Resolved]
  - Gait disturbance [Not Recovered/Not Resolved]
  - Arthritis [Not Recovered/Not Resolved]
  - Headache [Unknown]

NARRATIVE: CASE EVENT DATE: 20170727
